FAERS Safety Report 5023316-7 (Version None)
Quarter: 2006Q2

REPORT INFORMATION
  Report Type: 
  Country: None (occurrence: None)
  Receive Date: 20060606
  Receipt Date: 20060531
  Transmission Date: 20061013
  Serious: Yes (Hospitalization)
  Sender: FDA-Public Use
  Company Number: 200610758GDS

PATIENT
  Age: 57 Year
  Sex: Male
  Weight: 86 kg

DRUGS (9)
  1. SORAFENIB [Suspect]
     Indication: MALIGNANT MELANOMA
     Dosage: 400 MG, BID, ORAL
     Route: 048
     Dates: start: 20060216, end: 20060224
  2. CARBOPLATIN [Suspect]
     Indication: MALIGNANT MELANOMA
     Dosage: 780 MG, TOTAL DAILY, INTRAVENOUS
     Route: 042
     Dates: start: 20060215
  3. PACLITAXEL [Suspect]
     Indication: MALIGNANT MELANOMA
     Dosage: 470 MG, TOTAL DAILY, INTRAVENOUS
     Route: 042
     Dates: start: 20060215
  4. OXAZEPAM [Concomitant]
  5. PARACETAMOL [Concomitant]
  6. IBUPROFEN [Concomitant]
  7. SELOKEN [Concomitant]
  8. ASCAL [Concomitant]
  9. NITROGLYCERIN [Concomitant]

REACTIONS (1)
  - DYSPNOEA [None]
